FAERS Safety Report 16439082 (Version 2)
Quarter: 2019Q4

REPORT INFORMATION
  Report Type: Report from Study
  Country: AT (occurrence: AT)
  Receive Date: 20190617
  Receipt Date: 20191018
  Transmission Date: 20200122
  Serious: Yes (Hospitalization)
  Sender: FDA-Public Use
  Company Number: AT-ROCHE-2333762

PATIENT
  Age: 68 Year
  Sex: Female
  Weight: 62 kg

DRUGS (6)
  1. TYKERB [Suspect]
     Active Substance: LAPATINIB DITOSYLATE
     Indication: HER-2 POSITIVE BREAST CANCER
     Route: 048
     Dates: start: 20190311
  2. XELODA [Suspect]
     Active Substance: CAPECITABINE
     Indication: HER-2 POSITIVE BREAST CANCER
     Dosage: OTHER
     Route: 048
     Dates: start: 20190311
  3. NAVELBINE [Suspect]
     Active Substance: VINORELBINE TARTRATE
     Indication: HER-2 POSITIVE BREAST CANCER
     Dosage: MOST RECENT DSOE ON 07/JAN/2019
     Route: 048
     Dates: start: 20181016
  4. TRASTUZUMAB. [Suspect]
     Active Substance: TRASTUZUMAB
     Indication: HER-2 POSITIVE BREAST CANCER
     Dosage: MOST RECENT DOSE PRIOR TO THE EVENT: 16/OCT/2018
     Route: 042
     Dates: start: 20180918, end: 20181016
  5. PERTUZUMAB. [Suspect]
     Active Substance: PERTUZUMAB
     Indication: HER-2 POSITIVE BREAST CANCER
     Dosage: MOST RECENT DOSE PRIOR TO THE EVENT: 16/OCT/2018
     Route: 042
     Dates: start: 20180918
  6. TRASTUZUMAB EMTANSINE [Suspect]
     Active Substance: ADO-TRASTUZUMAB EMTANSINE
     Indication: HER-2 POSITIVE BREAST CANCER
     Dosage: MOST RECENT DOSE 28/JAN/2019
     Route: 042
     Dates: start: 20190107

REACTIONS (1)
  - General physical health deterioration [Recovered/Resolved]

NARRATIVE: CASE EVENT DATE: 20190606
